FAERS Safety Report 13714542 (Version 1)
Quarter: 2017Q3

REPORT INFORMATION
  Report Type: Spontaneous
  Country: US (occurrence: US)
  Receive Date: 20170704
  Receipt Date: 20170704
  Transmission Date: 20171127
  Serious: Yes (Death)
  Sender: FDA-Public Use
  Company Number: US-INSYS THERAPEUTICS, INC-INS201706-000411

PATIENT
  Sex: Male

DRUGS (9)
  1. OMEPRAZOLE. [Concomitant]
     Active Substance: OMEPRAZOLE
  2. GABAPENTIN. [Concomitant]
     Active Substance: GABAPENTIN
  3. FENTANYL TRANSDERMAL SYSTEM [Concomitant]
     Active Substance: FENTANYL
  4. LORAZEPAM. [Concomitant]
     Active Substance: LORAZEPAM
  5. SANCUSO PATCH [Concomitant]
  6. SUTENT [Concomitant]
     Active Substance: SUNITINIB MALATE
  7. METOPROLOL. [Concomitant]
     Active Substance: METOPROLOL
  8. EFFEXOR [Concomitant]
     Active Substance: VENLAFAXINE HYDROCHLORIDE
  9. SUBSYS [Suspect]
     Active Substance: FENTANYL
     Indication: PRODUCT USED FOR UNKNOWN INDICATION
     Route: 060

REACTIONS (1)
  - Neoplasm progression [Fatal]
